FAERS Safety Report 7221008-7 (Version None)
Quarter: 2011Q1

REPORT INFORMATION
  Report Type: 
  Country: None (occurrence: None)
  Receive Date: 20110103
  Receipt Date: 20101222
  Transmission Date: 20110831
  Serious: Yes (Life-Threatening, Other)
  Sender: FDA-Public Use
  Company Number: 2010SP054784

PATIENT
  Age: 58 Year
  Sex: Female

DRUGS (4)
  1. REBETOL [Suspect]
     Indication: HEPATITIS C
     Dosage: (600 MG; QD; PO) (200 MG; QD; PO)
     Route: 048
     Dates: end: 20090901
  2. REBETOL [Suspect]
     Indication: HEPATITIS C
     Dosage: (600 MG; QD; PO) (200 MG; QD; PO)
     Route: 048
     Dates: start: 20081001
  3. PEG-INTRON [Suspect]
     Indication: HEPATITIS C
     Dosage: (60 MCG; QW; SC) (30 MCG; QW; SC)
     Route: 058
     Dates: start: 20081001
  4. PEG-INTRON [Suspect]
     Indication: HEPATITIS C
     Dosage: (60 MCG; QW; SC) (30 MCG; QW; SC)
     Route: 058
     Dates: end: 20090901

REACTIONS (4)
  - CONDITION AGGRAVATED [None]
  - ANAEMIA [None]
  - BONE MARROW FAILURE [None]
  - LYMPHOMA [None]
